FAERS Safety Report 5512100-3 (Version None)
Quarter: 2007Q4

REPORT INFORMATION
  Report Type: 
  Country: None (occurrence: None)
  Receive Date: 20071109
  Receipt Date: 20071106
  Transmission Date: 20080405
  Serious: Yes (Life-Threatening)
  Sender: FDA-Public Use
  Company Number: HR-BOEHRINGER INGELHEIM PHARMACEUTICALS, INC.-2007-AP-00338AP

PATIENT
  Age: 73 Year
  Sex: Female

DRUGS (3)
  1. MIRAPEXIN [Suspect]
     Indication: PARKINSON'S DISEASE
     Route: 048
     Dates: start: 20070701, end: 20071030
  2. ACE INHIBITOR [Concomitant]
     Indication: HYPERTENSION
  3. INSULIN [Concomitant]
     Indication: TYPE 1 DIABETES MELLITUS

REACTIONS (1)
  - BLOOD GLUCOSE INCREASED [None]
